FAERS Safety Report 16538841 (Version 1)
Quarter: 2019Q3

REPORT INFORMATION
  Report Type: Spontaneous
  Country: CO (occurrence: CO)
  Receive Date: 20190708
  Receipt Date: 20190708
  Transmission Date: 20191004
  Serious: Yes (Hospitalization)
  Sender: FDA-Public Use
  Company Number: CO-UNICHEM PHARMACEUTICALS (USA) INC-UCM201906-000239

PATIENT
  Age: 29 Year
  Sex: Female

DRUGS (1)
  1. DIVALPROEX SODIUM. [Suspect]
     Active Substance: DIVALPROEX SODIUM
     Indication: MIGRAINE
     Route: 048

REACTIONS (5)
  - Amylase increased [Recovered/Resolved]
  - Leukocytosis [Recovered/Resolved]
  - Hyperlactacidaemia [Recovered/Resolved]
  - Metabolic acidosis [Recovered/Resolved]
  - Pancreatitis haemorrhagic [Recovered/Resolved]
